FAERS Safety Report 9549269 (Version 1)
Quarter: 2013Q3

REPORT INFORMATION
  Report Type: Report from Study
  Country: CA (occurrence: CA)
  Receive Date: 20130924
  Receipt Date: 20130924
  Transmission Date: 20140515
  Serious: Yes (Other)
  Sender: FDA-Public Use
  Company Number: CA-JNJFOC-20130910602

PATIENT
  Age: 53 Year
  Sex: Female

DRUGS (12)
  1. REMICADE [Suspect]
     Indication: CROHN^S DISEASE
     Route: 042
     Dates: start: 20130917
  2. REMICADE [Suspect]
     Indication: CROHN^S DISEASE
     Route: 042
     Dates: start: 200609
  3. REACTIN [Concomitant]
     Indication: PREMEDICATION
     Route: 065
  4. VITAMIN D [Concomitant]
     Route: 065
  5. VITAMIN B12 [Concomitant]
     Route: 065
  6. CALCIUM [Concomitant]
     Route: 065
  7. ZOFRAN [Concomitant]
     Route: 065
  8. MELOXICAM [Concomitant]
     Route: 065
  9. MERCAPTOPURINE [Concomitant]
     Route: 065
  10. VITAMIN C [Concomitant]
     Route: 065
  11. ZOPICLONE [Concomitant]
     Route: 065
  12. OMEPRAZOLE [Concomitant]
     Route: 065

REACTIONS (3)
  - Neoplasm malignant [Unknown]
  - Gastrointestinal stoma complication [Unknown]
  - Fungal infection [Not Recovered/Not Resolved]
